FAERS Safety Report 6185795-1 (Version None)
Quarter: 2009Q2

REPORT INFORMATION
  Report Type: 
  Country: None (occurrence: None)
  Receive Date: 20090511
  Receipt Date: 20090501
  Transmission Date: 20091009
  Serious: Yes (Death, Hospitalization)
  Sender: FDA-Public Use
  Company Number: A0722950A

PATIENT
  Age: 59 Year
  Sex: Male
  Weight: 88.6 kg

DRUGS (9)
  1. AVANDIA [Suspect]
     Dosage: 4MG PER DAY
     Route: 048
     Dates: start: 20060726, end: 20070619
  2. METFORMIN HCL [Concomitant]
     Dates: start: 20060601
  3. FUROSEMIDE [Concomitant]
     Indication: HYPERTENSION
  4. PLAVIX [Concomitant]
     Indication: CARDIAC VALVE DISEASE
  5. CLOPIDOGREL [Concomitant]
     Indication: CORONARY ARTERY DISEASE
  6. TOPROL-XL [Concomitant]
     Indication: CORONARY ARTERY DISEASE
  7. CRESTOR [Concomitant]
  8. TORSEMIDE [Concomitant]
     Indication: HYPERTENSION
  9. GLIPIZIDE [Concomitant]

REACTIONS (4)
  - ANAEMIA [None]
  - CARDIAC FAILURE CONGESTIVE [None]
  - OEDEMA [None]
  - PNEUMONIA [None]
